FAERS Safety Report 19657154 (Version 1)
Quarter: 2021Q3

REPORT INFORMATION
  Report Type: Spontaneous
  Country: HR (occurrence: HR)
  Receive Date: 20210804
  Receipt Date: 20210804
  Transmission Date: 20211014
  Serious: Yes (Other)
  Sender: FDA-Public Use
  Company Number: NVSC2021HR171075

PATIENT
  Age: 72 Year
  Sex: Male

DRUGS (2)
  1. CARBAMAZEPINE. [Suspect]
     Active Substance: CARBAMAZEPINE
     Indication: EPILEPSY
     Dosage: UNK
     Route: 065
  2. RIBAVIRIN. [Suspect]
     Active Substance: RIBAVIRIN
     Indication: CHRONIC HEPATITIS C
     Dosage: UNK
     Route: 065
     Dates: start: 2008

REACTIONS (6)
  - Fibrosis [Unknown]
  - Hypertension [Unknown]
  - Epilepsy [Unknown]
  - Hepatosplenomegaly [Unknown]
  - Therapy non-responder [Unknown]
  - Drug interaction [Unknown]

NARRATIVE: CASE EVENT DATE: 2018
